FAERS Safety Report 22880952 (Version 6)
Quarter: 2025Q3

REPORT INFORMATION
  Report Type: Spontaneous
  Country: EU (occurrence: EU)
  Receive Date: 20230830
  Receipt Date: 20250725
  Transmission Date: 20251020
  Serious: Yes (Other)
  Sender: AUROBINDO
  Company Number: EU-ROCHE-3399561

PATIENT
  Age: 59 Year
  Sex: Female
  Weight: 52 kg

DRUGS (45)
  1. BENDAMUSTINE HYDROCHLORIDE [Suspect]
     Active Substance: BENDAMUSTINE HYDROCHLORIDE
     Indication: Chronic lymphocytic leukaemia
     Route: 065
     Dates: start: 20140701
  2. DOXORUBICIN [Suspect]
     Active Substance: DOXORUBICIN
     Indication: Chronic lymphocytic leukaemia
     Route: 065
     Dates: start: 20230714
  3. DOXORUBICIN [Suspect]
     Active Substance: DOXORUBICIN
     Indication: Richter^s syndrome
  4. CYCLOPHOSPHAMIDE [Suspect]
     Active Substance: CYCLOPHOSPHAMIDE
     Indication: Chronic lymphocytic leukaemia
     Route: 065
     Dates: start: 20111101, end: 20120401
  5. CYCLOPHOSPHAMIDE [Suspect]
     Active Substance: CYCLOPHOSPHAMIDE
     Indication: Richter^s syndrome
     Route: 065
     Dates: start: 20230714, end: 20230805
  6. FLUDARABINE [Suspect]
     Active Substance: FLUDARABINE PHOSPHATE
     Indication: Chronic lymphocytic leukaemia
     Route: 065
     Dates: start: 20111101
  7. FLUDARABINE [Suspect]
     Active Substance: FLUDARABINE PHOSPHATE
     Route: 065
     Dates: start: 20111101, end: 20120401
  8. IBRUTINIB [Suspect]
     Active Substance: IBRUTINIB
     Indication: Chronic lymphocytic leukaemia
     Route: 065
     Dates: start: 20170101, end: 20200701
  9. IDELALISIB [Suspect]
     Active Substance: IDELALISIB
     Indication: Chronic lymphocytic leukaemia
     Route: 065
     Dates: start: 20230501
  10. IMBRUVICA [Suspect]
     Active Substance: IBRUTINIB
     Indication: Chronic lymphocytic leukaemia
     Route: 048
     Dates: start: 20230501
  11. IMBRUVICA [Suspect]
     Active Substance: IBRUTINIB
     Route: 065
     Dates: start: 20170101, end: 20200701
  12. MABTHERA [Suspect]
     Active Substance: RITUXIMAB
     Indication: Chronic lymphocytic leukaemia
     Route: 065
     Dates: start: 20111120
  13. MABTHERA [Suspect]
     Active Substance: RITUXIMAB
     Indication: Richter^s syndrome
     Route: 065
     Dates: start: 20140701, end: 20150101
  14. MABTHERA [Suspect]
     Active Substance: RITUXIMAB
     Route: 065
     Dates: start: 20230714
  15. MABTHERA [Suspect]
     Active Substance: RITUXIMAB
     Route: 065
     Dates: start: 202008
  16. MABTHERA [Suspect]
     Active Substance: RITUXIMAB
     Route: 065
     Dates: start: 202305, end: 202307
  17. MABTHERA [Suspect]
     Active Substance: RITUXIMAB
     Route: 065
     Dates: start: 20111101, end: 20120401
  18. PREDNISONE [Suspect]
     Active Substance: PREDNISONE
     Indication: Chronic lymphocytic leukaemia
     Route: 065
     Dates: start: 20230714
  19. PREDNISONE [Suspect]
     Active Substance: PREDNISONE
     Indication: Richter^s syndrome
  20. RUXIENCE [Suspect]
     Active Substance: RITUXIMAB-PVVR
     Indication: Richter^s syndrome
     Route: 065
     Dates: start: 20230805
  21. RUXIENCE [Suspect]
     Active Substance: RITUXIMAB-PVVR
     Indication: Chronic lymphocytic leukaemia
     Route: 065
     Dates: start: 20230714, end: 20230805
  22. RITUXIMAB [Suspect]
     Active Substance: RITUXIMAB
     Indication: Chronic lymphocytic leukaemia
     Route: 065
     Dates: start: 201111
  23. RITUXIMAB [Suspect]
     Active Substance: RITUXIMAB
     Route: 065
     Dates: start: 201407, end: 201501
  24. RITUXIMAB [Suspect]
     Active Substance: RITUXIMAB
     Route: 065
     Dates: start: 20200801, end: 20230501
  25. RITUXIMAB [Suspect]
     Active Substance: RITUXIMAB
     Route: 065
     Dates: start: 20230501, end: 20230701
  26. RITUXIMAB [Suspect]
     Active Substance: RITUXIMAB
     Route: 065
     Dates: start: 20230714
  27. VENETOCLAX [Suspect]
     Active Substance: VENETOCLAX
     Indication: Chronic lymphocytic leukaemia
     Route: 065
     Dates: start: 20200801, end: 20230501
  28. VINCRISTINE [Suspect]
     Active Substance: VINCRISTINE
     Indication: Chronic lymphocytic leukaemia
     Route: 065
     Dates: start: 20230714
  29. VINCRISTINE [Suspect]
     Active Substance: VINCRISTINE
     Indication: Richter^s syndrome
  30. ACYCLOVIR [Concomitant]
     Active Substance: ACYCLOVIR
     Indication: Product used for unknown indication
     Route: 065
  31. ATORVASTATIN [Concomitant]
     Active Substance: ATORVASTATIN
     Indication: Product used for unknown indication
     Route: 065
  32. BACTRIM [Concomitant]
     Active Substance: SULFAMETHOXAZOLE\TRIMETHOPRIM
     Indication: Product used for unknown indication
     Route: 065
  33. ACETAMINOPHEN\OXYCODONE HYDROCHLORIDE [Concomitant]
     Active Substance: ACETAMINOPHEN\OXYCODONE HYDROCHLORIDE
     Indication: Product used for unknown indication
     Route: 065
  34. ENOXAPARIN [Concomitant]
     Active Substance: ENOXAPARIN
     Indication: Product used for unknown indication
     Route: 065
  35. ESCITALOPRAM [Concomitant]
     Active Substance: ESCITALOPRAM OXALATE
     Indication: Product used for unknown indication
     Route: 065
  36. FOLIC ACID [Concomitant]
     Active Substance: FOLIC ACID
     Indication: Product used for unknown indication
     Route: 065
  37. LAMIVUDINE [Concomitant]
     Active Substance: LAMIVUDINE
     Indication: Product used for unknown indication
     Route: 065
  38. BROMAZEPAM [Concomitant]
     Active Substance: BROMAZEPAM
     Indication: Product used for unknown indication
     Route: 065
  39. Luvion [Concomitant]
     Indication: Product used for unknown indication
     Route: 065
  40. OMEGA-3-ACID ETHYL ESTERS [Concomitant]
     Active Substance: OMEGA-3-ACID ETHYL ESTERS
     Indication: Product used for unknown indication
     Route: 065
  41. PANTOPRAZOLE [Concomitant]
     Active Substance: PANTOPRAZOLE
     Indication: Product used for unknown indication
     Route: 065
  42. NALOXONE HYDROCHLORIDE\OXYCODONE HYDROCHLORIDE [Concomitant]
     Active Substance: NALOXONE HYDROCHLORIDE\OXYCODONE HYDROCHLORIDE
     Indication: Product used for unknown indication
     Route: 065
  43. XANAX [Concomitant]
     Active Substance: ALPRAZOLAM
     Indication: Product used for unknown indication
     Route: 065
  44. ZYDELIG [Concomitant]
     Active Substance: IDELALISIB
     Indication: Product used for unknown indication
     Route: 065
  45. ALLOPURINOL [Concomitant]
     Active Substance: ALLOPURINOL
     Indication: Product used for unknown indication
     Route: 065

REACTIONS (6)
  - Chronic lymphocytic leukaemia [Unknown]
  - Clostridium difficile colitis [Recovered/Resolved]
  - Disease progression [Unknown]
  - Therapy non-responder [Unknown]
  - Drug ineffective [Unknown]
  - Off label use [Unknown]

NARRATIVE: CASE EVENT DATE: 20230716
